FAERS Safety Report 6097274-0 (Version None)
Quarter: 2009Q1

REPORT INFORMATION
  Report Type: 
  Country: None (occurrence: None)
  Receive Date: 20090219
  Receipt Date: 20081105
  Transmission Date: 20090719
  Serious: No
  Sender: FDA-Public Use
  Company Number: WAES 0811USA00678

PATIENT
  Age: 72 Year
  Sex: Male
  Weight: 84.369 kg

DRUGS (12)
  1. JANUVIA [Suspect]
     Indication: DIABETES MELLITUS
     Dosage: 100 MG/DAILY/PO
     Route: 048
     Dates: start: 20071031, end: 20081104
  2. BENICAR HCT [Concomitant]
  3. CENTRUM SILVER [Concomitant]
  4. DARVOCET-N 100 [Concomitant]
  5. LANTUS [Concomitant]
  6. MEVACOR [Concomitant]
  7. SYNERA [Concomitant]
  8. TYLENOL [Concomitant]
  9. VALIUM [Concomitant]
  10. [THERAPY UNSPECIFIED] [Concomitant]
  11. ASPIRIN [Concomitant]
  12. CYANOCOBALAMIN [Concomitant]

REACTIONS (1)
  - RASH GENERALISED [None]
